FAERS Safety Report 16099762 (Version 1)
Quarter: 2019Q1

REPORT INFORMATION
  Report Type: Spontaneous
  Country: US (occurrence: US)
  Receive Date: 20190321
  Receipt Date: 20190321
  Transmission Date: 20190418
  Serious: Yes (Hospitalization)
  Sender: FDA-Public Use
  Company Number: US-TEVA-2019-US-1025689

PATIENT
  Age: 24 Year
  Sex: Male
  Weight: 107 kg

DRUGS (2)
  1. CLOZAPINE. [Suspect]
     Active Substance: CLOZAPINE
     Route: 065
  2. CLOZAPINE TEVA [Suspect]
     Active Substance: CLOZAPINE
     Dosage: 300 MILLIGRAM DAILY;
     Route: 065

REACTIONS (2)
  - Schizophrenia [Unknown]
  - Neutrophil count increased [Unknown]

NARRATIVE: CASE EVENT DATE: 20190312
